FAERS Safety Report 4286515-8 (Version None)
Quarter: 2004Q1

REPORT INFORMATION
  Report Type: 
  Country: None (occurrence: None)
  Receive Date: 20040204
  Receipt Date: 20040119
  Transmission Date: 20041129
  Serious: Yes (Life-Threatening, Hospitalization, Disabling)
  Sender: FDA-Public Use
  Company Number: 2004003841

PATIENT
  Sex: Female
  Weight: 65 kg

DRUGS (5)
  1. AMLODIPINE [Suspect]
     Indication: HYPERTENSION
     Dosage: 420 MG (DAILY), ORAL
     Route: 048
     Dates: start: 20040105, end: 20040105
  2. ATENOLOL [Suspect]
     Indication: HYPERTENSION
     Dosage: 25 MG (DAILY), ORAL
     Route: 048
     Dates: start: 20040105, end: 20040105
  3. CHLORTALIDONE (CHLORTALIDONE) [Suspect]
     Indication: HYPERTENSION
     Dosage: 875 MG (DAILY), ORAL
     Route: 048
     Dates: start: 20040105, end: 20040105
  4. DIPHENHYDRAMINE HCL [Concomitant]
  5. DEXTROMETHORPHAN / PSEUDOEPHEDRINE (PSEUDOEPHEDRINE / DEXTROMETHORPHAN [Concomitant]

REACTIONS (6)
  - BLOOD GLUCOSE DECREASED [None]
  - BRADYCARDIA [None]
  - GINGIVITIS [None]
  - HYPOTENSION [None]
  - MULTIPLE DRUG OVERDOSE [None]
  - PULMONARY EMBOLISM [None]
